FAERS Safety Report 6250356-2 (Version None)
Quarter: 2009Q2

REPORT INFORMATION
  Report Type: 
  Country: None (occurrence: None)
  Receive Date: 20090626
  Receipt Date: 20090626
  Transmission Date: 20091009
  Serious: Yes (Other)
  Sender: FDA-Public Use
  Company Number: None

PATIENT
  Sex: Female

DRUGS (5)
  1. PRISTIQ [Suspect]
     Dosage: ONE DAILY
     Dates: start: 20090301
  2. LEXAPRO [Concomitant]
  3. OXYCODONE HCL AND ACETAMINOPHEN [Concomitant]
  4. CLINDAMYCIN [Suspect]
  5. CEPHALEXIN [Concomitant]

REACTIONS (4)
  - PHOTOSENSITIVITY REACTION [None]
  - PRODUCT LABEL ISSUE [None]
  - SKIN EXFOLIATION [None]
  - SUNBURN [None]
